FAERS Safety Report 11866413 (Version 4)
Quarter: 2016Q1

REPORT INFORMATION
  Report Type: Spontaneous
  Country: DE (occurrence: DE)
  Receive Date: 20151224
  Receipt Date: 20160307
  Transmission Date: 20160526
  Serious: Yes (Life-Threatening, Hospitalization)
  Sender: FDA-Public Use
  Company Number: DE-ROCHE-1681115

PATIENT
  Age: 61 Year
  Sex: Female
  Weight: 48 kg

DRUGS (6)
  1. MABTHERA [Suspect]
     Active Substance: RITUXIMAB
     Route: 042
     Dates: start: 20151110
  2. CYTOSINE ARABINOSIDE [Concomitant]
     Active Substance: CYTARABINE
     Dosage: 2 X 1000 MG/M2 ON DAYS 1, 3 AND 5
     Route: 065
     Dates: end: 20160118
  3. BENDAMUSTINA [Suspect]
     Active Substance: BENDAMUSTINE
     Indication: NON-HODGKIN^S LYMPHOMA
     Route: 042
     Dates: start: 20151110, end: 20151111
  4. MABTHERA [Suspect]
     Active Substance: RITUXIMAB
     Indication: NON-HODGKIN^S LYMPHOMA
     Route: 042
     Dates: start: 20151109
  5. CYTOSINE ARABINOSIDE [Concomitant]
     Active Substance: CYTARABINE
     Dosage: OVER 24 HOURS ON DAYS 1-7
     Route: 042
  6. DAUNORUBICIN [Concomitant]
     Active Substance: DAUNORUBICIN
     Dosage: ON DAYS 3-5.
     Route: 042

REACTIONS (19)
  - Oral herpes [Unknown]
  - Oral candidiasis [Unknown]
  - Pupils unequal [Unknown]
  - Carotid artery occlusion [Unknown]
  - Drug hypersensitivity [Unknown]
  - Cerebral ischaemia [Unknown]
  - Sinusitis aspergillus [Unknown]
  - Periorbital haemorrhage [Unknown]
  - Acute myeloid leukaemia [Not Recovered/Not Resolved]
  - Drug eruption [Recovered/Resolved]
  - Clostridium difficile colitis [Unknown]
  - Retinal ischaemia [Unknown]
  - Atypical pneumonia [Unknown]
  - Carotid artery dissection [Unknown]
  - Thrombocytopenia [Unknown]
  - Pneumonia fungal [Unknown]
  - Fall [Unknown]
  - Lip ulceration [Unknown]
  - Leukopenia [Unknown]

NARRATIVE: CASE EVENT DATE: 20151130
